FAERS Safety Report 9213786 (Version 1)
Quarter: 2013Q2

REPORT INFORMATION
  Report Type: Spontaneous
  Country: US (occurrence: None)
  Receive Date: 20130404
  Receipt Date: 20130404
  Transmission Date: 20140414
  Serious: No
  Sender: FDA-Public Use
  Company Number: None

PATIENT
  Age: 52 Year
  Sex: Female
  Weight: 60.78 kg

DRUGS (1)
  1. OPTIC WHITE COOL MILD MINT COLGATE-PALMOLIVE [Suspect]
     Dosage: 1 APPLICATION  TWICE DAILY  DENTAL
     Route: 004
     Dates: start: 20130116, end: 20130322

REACTIONS (4)
  - Oropharyngeal pain [None]
  - Lip dry [None]
  - Inflammation [None]
  - Toothache [None]
